FAERS Safety Report 15799892 (Version 2)
Quarter: 2019Q1

REPORT INFORMATION
  Report Type: Report from Study
  Country: IT (occurrence: IT)
  Receive Date: 20190108
  Receipt Date: 20190214
  Transmission Date: 20190417
  Serious: Yes (Death, Hospitalization)
  Sender: FDA-Public Use
  Company Number: IT-PFIZER INC-2019006259

PATIENT
  Age: 66 Year
  Sex: Male
  Weight: 78.5 kg

DRUGS (16)
  1. PEGILODECAKIN [Suspect]
     Active Substance: PEGILODECAKIN
     Dosage: 0.4 MG, 1X/DAY
     Route: 058
     Dates: start: 20180803, end: 20181005
  2. FLUOROURACIL. [Suspect]
     Active Substance: FLUOROURACIL
     Dosage: 780 MG, 1X/DAY
     Route: 040
     Dates: start: 20180803, end: 20180803
  3. DEURSIL [Concomitant]
     Active Substance: URSODIOL
     Dosage: UNK
     Dates: start: 20181013
  4. FLUOROURACIL. [Suspect]
     Active Substance: FLUOROURACIL
     Dosage: 780 MG, 1X/DAY
     Route: 040
     Dates: start: 20180926, end: 20180926
  5. ACICLOVIR [Concomitant]
     Active Substance: ACYCLOVIR
     Dosage: UNK
     Dates: start: 20181011, end: 20181017
  6. FLUOROURACIL. [Suspect]
     Active Substance: FLUOROURACIL
     Dosage: 4700 MG, 1X/DAY
     Route: 040
     Dates: start: 20180803, end: 20180803
  7. LANTUS [Concomitant]
     Active Substance: INSULIN GLARGINE
     Dosage: UNK
     Dates: start: 20180305
  8. HUMALOG [Concomitant]
     Active Substance: INSULIN LISPRO
     Dosage: UNK
     Dates: start: 20180305
  9. MEDROL [Concomitant]
     Active Substance: METHYLPREDNISOLONE
     Dosage: UNK
     Dates: start: 20181016, end: 20181024
  10. OXALIPLATIN. [Suspect]
     Active Substance: OXALIPLATIN
     Indication: PANCREATIC CARCINOMA METASTATIC
     Dosage: 165 MG, CYCLIC
     Route: 042
     Dates: start: 20180803, end: 20180803
  11. LEUCOVORIN [CALCIUM FOLINATE] [Suspect]
     Active Substance: LEUCOVORIN
     Indication: PANCREATIC CARCINOMA METASTATIC
     Dosage: 780 MG, CYCLIC
     Route: 042
     Dates: start: 20180803, end: 20180803
  12. LEUCOVORIN [CALCIUM FOLINATE] [Suspect]
     Active Substance: LEUCOVORIN
     Dosage: 780 MG, CYCLIC
     Route: 042
     Dates: start: 20180924, end: 20180924
  13. LANSOPRAZOLE. [Concomitant]
     Active Substance: LANSOPRAZOLE
     Dosage: UNK
     Dates: start: 20181009
  14. OXALIPLATIN. [Suspect]
     Active Substance: OXALIPLATIN
     Dosage: 165 MG, 1X/DAY
     Route: 042
     Dates: start: 20180924, end: 20180924
  15. FLUOROURACIL. [Suspect]
     Active Substance: FLUOROURACIL
     Dosage: 4700 MG, 1X/DAY
     Route: 040
     Dates: start: 20180926, end: 20180926
  16. MYCOSTATIN [Concomitant]
     Active Substance: NYSTATIN
     Dosage: UNK
     Dates: start: 20181009

REACTIONS (9)
  - Vomiting [Unknown]
  - Chills [Unknown]
  - Jaundice [Unknown]
  - Pyrexia [Unknown]
  - Escherichia sepsis [Recovered/Resolved]
  - Nausea [Unknown]
  - Cholangitis [Unknown]
  - Neoplasm progression [Fatal]
  - Hypotension [Unknown]

NARRATIVE: CASE EVENT DATE: 20181008
